FAERS Safety Report 12961065 (Version 1)
Quarter: 2016Q4

REPORT INFORMATION
  Report Type: Report from Study
  Country: US (occurrence: US)
  Receive Date: 20161121
  Receipt Date: 20161121
  Transmission Date: 20170207
  Serious: Yes (Other)
  Sender: FDA-Public Use
  Company Number: US-GILEAD-2016-0244368

PATIENT
  Age: 63 Year
  Sex: Female

DRUGS (5)
  1. OFEV [Concomitant]
     Active Substance: NINTEDANIB
  2. AMBRISENTAN [Suspect]
     Active Substance: AMBRISENTAN
     Indication: PULMONARY ARTERIAL HYPERTENSION
     Dosage: 5 MG, QD
     Route: 065
     Dates: start: 20161101
  3. ADEMPAS [Concomitant]
     Active Substance: RIOCIGUAT
  4. FORTEO [Concomitant]
     Active Substance: TERIPARATIDE
  5. OXYGEN. [Concomitant]
     Active Substance: OXYGEN

REACTIONS (2)
  - Cataract [Recovered/Resolved]
  - Headache [Unknown]
